FAERS Safety Report 9628684 (Version 1)
Quarter: 2013Q4

REPORT INFORMATION
  Report Type: Spontaneous
  Country: SE (occurrence: SE)
  Receive Date: 20131017
  Receipt Date: 20131017
  Transmission Date: 20140711
  Serious: Yes (Death)
  Sender: FDA-Public Use
  Company Number: SE-MYLANLABS-2013S1022447

PATIENT
  Age: 18 Year
  Sex: Male

DRUGS (4)
  1. NOREPINEPHRINE [Suspect]
     Route: 065
  2. DOPAMINE [Suspect]
     Route: 065
  3. EPINEPHRINE [Suspect]
     Route: 065
  4. EPINEPHRINE [Suspect]
     Dosage: REPEATED BOLUSES
     Route: 065

REACTIONS (1)
  - Stress cardiomyopathy [Fatal]
